FAERS Safety Report 23149034 (Version 2)
Quarter: 2023Q4

REPORT INFORMATION
  Report Type: Spontaneous
  Country: SE (occurrence: SE)
  Receive Date: 20231106
  Receipt Date: 20231208
  Transmission Date: 20240110
  Serious: Yes (Other)
  Sender: FDA-Public Use
  Company Number: SE-SANDOZ-SDZ2023SE050520

PATIENT
  Age: 77 Year
  Sex: Female

DRUGS (1)
  1. BIOCLAVID [Suspect]
     Active Substance: AMOXICILLIN\CLAVULANIC ACID
     Indication: Zoonotic bacterial infection
     Dosage: UNK
     Route: 065
     Dates: end: 20231009

REACTIONS (4)
  - Syncope [Unknown]
  - Tooth injury [Unknown]
  - Dizziness [Unknown]
  - Headache [Unknown]

NARRATIVE: CASE EVENT DATE: 20231006
